FAERS Safety Report 8267912 (Version 2)
Quarter: 2014Q2

REPORT INFORMATION
  Report Type: Spontaneous
  Country: US (occurrence: US)
  Receive Date: 20111129
  Receipt Date: 20140616
  Transmission Date: 20141212
  Serious: Yes (Other)
  Sender: FDA-Public Use
  Company Number: US-ROCHE-792627

PATIENT
  Age: 20 Year
  Sex: Female
  Weight: 62.2 kg

DRUGS (3)
  1. ACCUTANE [Suspect]
     Indication: ACNE
     Route: 065
     Dates: start: 19940101, end: 19941231
  2. NPH INSULIN [Concomitant]
  3. REGULAR INSULIN [Concomitant]

REACTIONS (13)
  - Crohn^s disease [Unknown]
  - Inflammatory bowel disease [Unknown]
  - Colitis ulcerative [Unknown]
  - Cholangitis sclerosing [Unknown]
  - Anal fistula [Unknown]
  - Depression [Unknown]
  - Intestinal obstruction [Unknown]
  - Blood alkaline phosphatase increased [Unknown]
  - Aspartate aminotransferase increased [Unknown]
  - Alanine aminotransferase increased [Unknown]
  - Hair texture abnormal [Unknown]
  - Alopecia [Unknown]
  - Epistaxis [Unknown]
